FAERS Safety Report 10711627 (Version 1)
Quarter: 2015Q1

REPORT INFORMATION
  Report Type: Spontaneous
  Country: US (occurrence: US)
  Receive Date: 20150114
  Receipt Date: 20150114
  Transmission Date: 20150721
  Serious: Yes (Hospitalization, Other)
  Sender: FDA-Public Use
  Company Number: US-EMD SERONO-7133722

PATIENT
  Sex: Male
  Weight: 38 kg

DRUGS (9)
  1. CITALOPRAM [Concomitant]
     Active Substance: CITALOPRAM HYDROBROMIDE
     Indication: PRODUCT USED FOR UNKNOWN INDICATION
  2. LORAZEPAM. [Concomitant]
     Active Substance: LORAZEPAM
     Indication: PRODUCT USED FOR UNKNOWN INDICATION
  3. RISPERIDONE. [Concomitant]
     Active Substance: RISPERIDONE
     Indication: PRODUCT USED FOR UNKNOWN INDICATION
  4. VITAMIN D3 [Concomitant]
     Active Substance: CHOLECALCIFEROL
     Indication: PRODUCT USED FOR UNKNOWN INDICATION
  5. LEVOTHYROXINE [Concomitant]
     Active Substance: LEVOTHYROXINE
     Indication: PRODUCT USED FOR UNKNOWN INDICATION
  6. SAIZEN [Suspect]
     Active Substance: SOMATROPIN
     Indication: SMALL FOR DATES BABY
     Dates: start: 20080531
  7. ALOES                              /00257301/ [Concomitant]
     Indication: PRODUCT USED FOR UNKNOWN INDICATION
  8. SAIZEN [Suspect]
     Active Substance: SOMATROPIN
     Indication: GROWTH RETARDATION
  9. OMEGA                              /00694402/ [Concomitant]
     Indication: PRODUCT USED FOR UNKNOWN INDICATION

REACTIONS (13)
  - Tourette^s disorder [Not Recovered/Not Resolved]
  - Constipation [Unknown]
  - Hallucination [Not Recovered/Not Resolved]
  - Acne [Unknown]
  - Flat affect [Unknown]
  - Myalgia [Unknown]
  - Oropharyngeal pain [Unknown]
  - Weight decreased [Unknown]
  - Anxiety [Unknown]
  - Obsessive-compulsive disorder [Not Recovered/Not Resolved]
  - Paediatric autoimmune neuropsychiatric disorders associated with streptococcal infection [Recovering/Resolving]
  - Syncope [Unknown]
  - Anaemia [Unknown]
